FAERS Safety Report 14818777 (Version 1)
Quarter: 2018Q2

REPORT INFORMATION
  Report Type: Spontaneous
  Country: US (occurrence: US)
  Receive Date: 20180427
  Receipt Date: 20180427
  Transmission Date: 20180711
  Serious: No
  Sender: FDA-Public Use
  Company Number: US-JNJFOC-20180406141

PATIENT
  Age: 22 Year
  Sex: Male
  Weight: 74.84 kg

DRUGS (2)
  1. MENS ROGAINE EXTRA STRENGTH [Suspect]
     Active Substance: MINOXIDIL
     Route: 061
  2. MENS ROGAINE EXTRA STRENGTH [Suspect]
     Active Substance: MINOXIDIL
     Indication: ALOPECIA
     Dosage: 5 DROPS TO TWO QUARTER SIZE AREAS
     Route: 061

REACTIONS (8)
  - Product administered at inappropriate site [Unknown]
  - Inappropriate schedule of drug administration [Unknown]
  - Alopecia [Not Recovered/Not Resolved]
  - Pruritus [Not Recovered/Not Resolved]
  - Erythema [Not Recovered/Not Resolved]
  - Incorrect dose administered [Unknown]
  - Palpitations [Not Recovered/Not Resolved]
  - Dry skin [Not Recovered/Not Resolved]
